FAERS Safety Report 10070039 (Version 8)
Quarter: 2014Q2

REPORT INFORMATION
  Report Type: Spontaneous
  Country: GB (occurrence: None)
  Receive Date: 20140408
  Receipt Date: 20140528
  Transmission Date: 20141212
  Serious: Yes (Other)
  Sender: FDA-Public Use
  Company Number: AUR-APL-2014-03910

PATIENT
  Sex: Female

DRUGS (8)
  1. METFORMIN [Suspect]
     Indication: DIABETES MELLITUS
     Dosage: STOPPED
  2. IBUPROFEN [Suspect]
     Indication: PRODUCT USED FOR UNKNOWN INDICATION
     Dosage: STOPPED
  3. ELIQUIS [Suspect]
     Indication: HIP ARTHROPLASTY
  4. ELIQUIS [Suspect]
     Indication: KNEE ARTHROPLASTY
  5. FLUCLOXACILLIN [Suspect]
     Indication: PRODUCT USED FOR UNKNOWN INDICATION
     Dosage: STOPPED
  6. FLUCLOXACILLIN [Suspect]
     Indication: KNEE ARTHROPLASTY
     Dosage: STOPPED
  7. GENTAMICIN [Suspect]
     Indication: PRODUCT USED FOR UNKNOWN INDICATION
     Dosage: STOPPED
  8. GENTAMICIN [Suspect]
     Indication: KNEE ARTHROPLASTY
     Dosage: STOPPED

REACTIONS (5)
  - Creatinine renal clearance increased [None]
  - Drug interaction [None]
  - Renal failure [None]
  - Blood pressure decreased [None]
  - Nephropathy toxic [None]
